FAERS Safety Report 14928913 (Version 1)
Quarter: 2018Q2

REPORT INFORMATION
  Report Type: Spontaneous
  Country: TR (occurrence: TR)
  Receive Date: 20180523
  Receipt Date: 20180523
  Transmission Date: 20180711
  Serious: Yes (Other)
  Sender: FDA-Public Use
  Company Number: TR-JNJFOC-20180522310

PATIENT

DRUGS (6)
  1. RISPERIDONE. [Suspect]
     Active Substance: RISPERIDONE
     Indication: ATTENTION DEFICIT/HYPERACTIVITY DISORDER
     Dosage: INITIAL DOSE: 0.25-0.5 MG PER DAY, MAXIMUM DOSE: 2 MG PER DAY
     Route: 065
  2. RISPERIDONE. [Suspect]
     Active Substance: RISPERIDONE
     Indication: CONDUCT DISORDER
     Dosage: INITIAL DOSE: 0.25-0.5 MG PER DAY, MAXIMUM DOSE: 2 MG PER DAY
     Route: 065
  3. METHYLPHENIDATE HYDROCHLORIDE. [Interacting]
     Active Substance: METHYLPHENIDATE HYDROCHLORIDE
     Indication: ATTENTION DEFICIT/HYPERACTIVITY DISORDER
     Dosage: DOSE: 0.5 MG/KG/DAY, MAXIMUM DOSE: 1.5 MG/KG/DAY, DOSE RANGED BETWEEN 10-60 MG
     Route: 065
  4. METHYLPHENIDATE HYDROCHLORIDE. [Interacting]
     Active Substance: METHYLPHENIDATE HYDROCHLORIDE
     Indication: CONDUCT DISORDER
     Dosage: DOSE: 0.5 MG/KG/DAY, MAXIMUM DOSE: 1.5 MG/KG/DAY, DOSE RANGED BETWEEN 10-60 MG
     Route: 065
  5. METHYLPHENIDATE HYDROCHLORIDE. [Interacting]
     Active Substance: METHYLPHENIDATE HYDROCHLORIDE
     Indication: CONDUCT DISORDER
     Dosage: DOSE: 0.5 MG/KG/DAY, MAXIMUM DOSE: 1.5 MG/KG/DAY, DOSE RANGED BETWEEN 18-72 MG
     Route: 065
  6. METHYLPHENIDATE HYDROCHLORIDE. [Interacting]
     Active Substance: METHYLPHENIDATE HYDROCHLORIDE
     Indication: ATTENTION DEFICIT/HYPERACTIVITY DISORDER
     Dosage: DOSE: 0.5 MG/KG/DAY, MAXIMUM DOSE: 1.5 MG/KG/DAY, DOSE RANGED BETWEEN 18-72 MG
     Route: 065

REACTIONS (6)
  - Heart rate increased [Unknown]
  - Electrocardiogram T wave abnormal [Unknown]
  - Electrocardiogram QT prolonged [Unknown]
  - Blood pressure systolic increased [Unknown]
  - Drug interaction [Unknown]
  - Blood pressure diastolic increased [Unknown]
